FAERS Safety Report 14615000 (Version 1)
Quarter: 2018Q1

REPORT INFORMATION
  Report Type: Spontaneous
  Country: US (occurrence: US)
  Receive Date: 20180308
  Receipt Date: 20180308
  Transmission Date: 20180509
  Serious: No
  Sender: FDA-Public Use
  Company Number: US-TARO-2017TAR00481

PATIENT
  Sex: Male

DRUGS (1)
  1. ENALAPRIL MALEATE TABLETS USP 10 MG [Suspect]
     Active Substance: ENALAPRIL MALEATE

REACTIONS (2)
  - Abdominal pain upper [Unknown]
  - Gluten sensitivity [Unknown]
